FAERS Safety Report 10724776 (Version 1)
Quarter: 2015Q1

REPORT INFORMATION
  Report Type: Spontaneous
  Country: US (occurrence: None)
  Receive Date: 20150116
  Receipt Date: 20150116
  Transmission Date: 20150721
  Serious: Yes (Life-Threatening)
  Sender: FDA-Public Use
  Company Number: None

PATIENT
  Age: 76 Year
  Sex: Male
  Weight: 64.6 kg

DRUGS (2)
  1. ADENOSINE. [Suspect]
     Active Substance: ADENOSINE
     Dates: start: 20140331, end: 20140331
  2. ADENOSINE. [Suspect]
     Active Substance: ADENOSINE
     Indication: CARDIOVASCULAR DISORDER
     Dates: start: 20140331, end: 20140331

REACTIONS (1)
  - Dyspnoea [None]

NARRATIVE: CASE EVENT DATE: 20140331
